FAERS Safety Report 5626611-3 (Version None)
Quarter: 2008Q1

REPORT INFORMATION
  Report Type: 
  Country: None (occurrence: None)
  Receive Date: 20080214
  Receipt Date: 20080204
  Transmission Date: 20080703
  Serious: Yes (Hospitalization)
  Sender: FDA-Public Use
  Company Number: US-ELI_LILLY_AND_COMPANY-US200802000743

PATIENT
  Sex: Female

DRUGS (15)
  1. CYMBALTA [Suspect]
     Indication: DEPRESSION
     Dosage: 60 MG, DAILY (1/D)
  2. CLONAZEPAM [Concomitant]
     Dosage: 0.5 MG, 2/D
  3. REQUIP [Concomitant]
     Dosage: 0.25 MG, EACH EVENING
  4. NORVASC [Concomitant]
     Dosage: 10 MG, DAILY (1/D)
  5. LASIX [Concomitant]
     Dosage: 40 MG, 2/D
  6. ZOCOR [Concomitant]
     Dosage: 40 MG, EACH EVENING
  7. DETROL [Concomitant]
     Dosage: 4 MG, DAILY (1/D)
  8. CLONIDINE [Concomitant]
     Dosage: 0.25 MG, 2/D
  9. LISINOPRIL [Concomitant]
     Dosage: 40 MG, DAILY (1/D)
  10. PROTONIX [Concomitant]
     Dosage: 40 MG, DAILY (1/D)
  11. COUMADIN [Concomitant]
  12. MOM [Concomitant]
  13. VICODIN [Concomitant]
  14. ACETAMINOPHEN [Concomitant]
  15. ALBUTEROL [Concomitant]
     Route: 055

REACTIONS (5)
  - AGITATION [None]
  - ANXIETY [None]
  - HAEMATOMA [None]
  - PNEUMONIA [None]
  - RESPIRATORY FAILURE [None]
